FAERS Safety Report 8353272-5 (Version None)
Quarter: 2012Q2

REPORT INFORMATION
  Report Type: 
  Country: None (occurrence: None)
  Receive Date: 20120511
  Receipt Date: 20120504
  Transmission Date: 20120825
  Serious: Yes (Hospitalization)
  Sender: FDA-Public Use
  Company Number: US-ASTRAZENECA-2012SE29084

PATIENT
  Age: 49 Year
  Sex: Female
  Weight: 63 kg

DRUGS (2)
  1. FASLODEX [Suspect]
     Indication: BREAST CANCER METASTATIC
     Dosage: 500 MG
     Route: 030
     Dates: start: 20120313
  2. HIGH BLOOD PRESSURE MEDICATIONS [Concomitant]

REACTIONS (17)
  - EATING DISORDER [None]
  - COUGH [None]
  - DECREASED APPETITE [None]
  - MYALGIA [None]
  - INFLUENZA [None]
  - MALAISE [None]
  - WEIGHT DECREASED [None]
  - NAUSEA [None]
  - INJECTION SITE PAIN [None]
  - BACK PAIN [None]
  - FATIGUE [None]
  - INJECTION SITE PRURITUS [None]
  - INJECTION SITE EXTRAVASATION [None]
  - BONE PAIN [None]
  - HOT FLUSH [None]
  - HEADACHE [None]
  - VOMITING [None]
